FAERS Safety Report 24667012 (Version 2)
Quarter: 2024Q4

REPORT INFORMATION
  Report Type: Spontaneous
  Country: US (occurrence: US)
  Receive Date: 20241126
  Receipt Date: 20241202
  Transmission Date: 20250115
  Serious: Yes (Hospitalization)
  Sender: PFIZER
  Company Number: US-MLMSERVICE-20241115-PI255230-00099-4

PATIENT
  Age: 71 Year
  Sex: Male

DRUGS (6)
  1. DOXYCYCLINE HYCLATE [Suspect]
     Active Substance: DOXYCYCLINE HYCLATE
     Indication: Catheter site infection
     Dosage: UNK
     Route: 048
  2. CIPROFLOXACIN [Suspect]
     Active Substance: CIPROFLOXACIN
     Indication: Antibiotic prophylaxis
     Dosage: 500 MG, 2X/DAY
     Route: 048
  3. MAGROLIMAB [Suspect]
     Active Substance: MAGROLIMAB
     Indication: Myelodysplastic syndrome
     Dosage: UNK
  4. AZACITIDINE [Suspect]
     Active Substance: AZACITIDINE
     Indication: Myelodysplastic syndrome
     Dosage: UNK
  5. ACYCLOVIR [Concomitant]
     Active Substance: ACYCLOVIR
     Indication: Antiviral prophylaxis
     Dosage: 400 MG, 2X/DAY
     Route: 048
  6. MICAFUNGIN [Concomitant]
     Active Substance: MICAFUNGIN SODIUM
     Indication: Antifungal prophylaxis
     Dosage: 100 MG, 1X/DAY
     Route: 042

REACTIONS (4)
  - Neutropenia [Recovered/Resolved]
  - Catheter site infection [Recovered/Resolved]
  - Corynebacterium bacteraemia [Recovered/Resolved]
  - Off label use [Unknown]
